FAERS Safety Report 5609942-2 (Version None)
Quarter: 2008Q1

REPORT INFORMATION
  Report Type: 
  Country: None (occurrence: None)
  Receive Date: 20080129
  Receipt Date: 20080114
  Transmission Date: 20080703
  Serious: Yes (Death, Other)
  Sender: FDA-Public Use
  Company Number: 2008BI001215

PATIENT
  Age: 61 Year
  Sex: Female

DRUGS (9)
  1. TYSABRI [Suspect]
     Indication: MULTIPLE SCLEROSIS
     Dosage: 300 MG; QM; IM
     Route: 030
     Dates: start: 20061103, end: 20070223
  2. HYDROCHLOROTHIAZIDE [Concomitant]
  3. TOPROL [Concomitant]
  4. TARKA [Concomitant]
  5. ASPIRIN [Concomitant]
  6. TOPAMAX [Concomitant]
  7. OMEPRAZOLE [Concomitant]
  8. POTASSIUM CHLORIDE [Concomitant]
  9. OXYBUTIN [Concomitant]

REACTIONS (6)
  - GASTROENTERITIS VIRAL [None]
  - GENERAL PHYSICAL HEALTH DETERIORATION [None]
  - HERPES ZOSTER [None]
  - MENINGIOMA [None]
  - NERVOUS SYSTEM DISORDER [None]
  - PNEUMONIA ASPIRATION [None]
